FAERS Safety Report 7675657-2 (Version None)
Quarter: 2011Q3

REPORT INFORMATION
  Report Type: 
  Country: None (occurrence: None)
  Receive Date: 20110810
  Receipt Date: 20110620
  Transmission Date: 20111222
  Serious: Yes (Other)
  Sender: FDA-Public Use
  Company Number: US-BAYER-2011-070047

PATIENT
  Sex: Female

DRUGS (2)
  1. ALKA-SELTZER PLUS NIGHT COLD MEDICINE LIQUID GELS [Suspect]
     Indication: NASOPHARYNGITIS
     Dosage: 2 DF EVERY 6 HOURS
     Route: 048
     Dates: start: 20110601, end: 20110618
  2. ALKA-SELTZER PLUS DAY COLD [Suspect]
     Indication: NASOPHARYNGITIS
     Dosage: 2 DF EVERY 6 HOURS, BOTTLE COUNT 20CT
     Route: 048
     Dates: start: 20110531

REACTIONS (3)
  - DRUG DEPENDENCE [None]
  - NASOPHARYNGITIS [None]
  - SOMNOLENCE [None]
